FAERS Safety Report 20062682 (Version 9)
Quarter: 2022Q4

REPORT INFORMATION
  Report Type: Report from Study
  Country: CA (occurrence: CA)
  Receive Date: 20211112
  Receipt Date: 20221230
  Transmission Date: 20230112
  Serious: Yes (Other)
  Sender: FDA-Public Use
  Company Number: CA-TAKEDA-2021TUS069850

PATIENT
  Age: 74 Year
  Sex: Female

DRUGS (11)
  1. VEDOLIZUMAB [Suspect]
     Active Substance: VEDOLIZUMAB
     Indication: Colitis ulcerative
     Dosage: 300 MILLIGRAM
     Route: 042
     Dates: start: 20211022
  2. VEDOLIZUMAB [Suspect]
     Active Substance: VEDOLIZUMAB
     Dosage: 300 MILLIGRAM
     Route: 042
  3. VEDOLIZUMAB [Suspect]
     Active Substance: VEDOLIZUMAB
     Dosage: 300 MILLIGRAM
     Route: 042
  4. PREDNISONE [Concomitant]
     Active Substance: PREDNISONE
     Dosage: 30 MILLIGRAM
     Route: 048
     Dates: start: 20211110, end: 20220101
  5. Salofalk [Concomitant]
     Dosage: UNK
     Route: 055
     Dates: end: 20211117
  6. Cortiment [Concomitant]
     Dosage: 9 MILLIGRAM
     Route: 048
     Dates: end: 20210320
  7. MESALAMINE [Concomitant]
     Active Substance: MESALAMINE
     Dosage: 1.2 GRAM
     Route: 048
     Dates: end: 20211117
  8. TICAGRELOR [Concomitant]
     Active Substance: TICAGRELOR
     Dosage: 90 MILLIGRAM
     Route: 048
     Dates: start: 20220929
  9. ASPIRIN [Concomitant]
     Active Substance: ASPIRIN
     Dosage: 81 MILLIGRAM
     Route: 048
     Dates: start: 20220929
  10. BISOPROLOL [Concomitant]
     Active Substance: BISOPROLOL
     Dosage: 0.5 MILLIGRAM
     Route: 048
     Dates: start: 20220929
  11. ROSUVASTATIN [Concomitant]
     Active Substance: ROSUVASTATIN
     Dosage: 10 MILLIGRAM
     Route: 048
     Dates: start: 20220929

REACTIONS (14)
  - Colitis ulcerative [Not Recovered/Not Resolved]
  - Rectal haemorrhage [Unknown]
  - Haematochezia [Unknown]
  - Rhinorrhoea [Unknown]
  - Arthralgia [Unknown]
  - Fatigue [Unknown]
  - Feeling abnormal [Unknown]
  - Decreased appetite [Unknown]
  - Feeling cold [Unknown]
  - Chills [Unknown]
  - Headache [Unknown]
  - Pyrexia [Unknown]
  - Nausea [Unknown]
  - Influenza [Unknown]
